FAERS Safety Report 23699338 (Version 1)
Quarter: 2024Q2

REPORT INFORMATION
  Report Type: Report from Study
  Country: US (occurrence: US)
  Receive Date: 20240402
  Receipt Date: 20240402
  Transmission Date: 20240716
  Serious: No
  Sender: FDA-Public Use
  Company Number: US-ALXN-202403USA001918US

PATIENT

DRUGS (1)
  1. STRENSIQ [Suspect]
     Active Substance: ASFOTASE ALFA
     Indication: Product used for unknown indication
     Dosage: UNK
     Route: 065

REACTIONS (10)
  - Depression [Unknown]
  - Anxiety [Unknown]
  - Decreased appetite [Unknown]
  - Stress [Unknown]
  - Dyspepsia [Unknown]
  - Influenza like illness [Unknown]
  - Weight decreased [Unknown]
  - Brain fog [Unknown]
  - Abdominal pain [Unknown]
  - Arthralgia [Unknown]

NARRATIVE: CASE EVENT DATE: 20240312
